FAERS Safety Report 10973691 (Version 1)
Quarter: 2015Q1

REPORT INFORMATION
  Report Type: Spontaneous
  Country: US (occurrence: None)
  Receive Date: 20150331
  Receipt Date: 20150331
  Transmission Date: 20150721
  Serious: Yes (Life-Threatening, Disabling)
  Sender: FDA-Public Use
  Company Number: None

PATIENT
  Age: 26 Year
  Sex: Female
  Weight: 71.67 kg

DRUGS (2)
  1. LUPRON [Suspect]
     Active Substance: LEUPROLIDE ACETATE
     Indication: ENDOMETRIOSIS
     Dosage: 1 PER MONTH INTO THE MUSCLE
     Route: 030
     Dates: start: 20150105, end: 20150330
  2. IBUPROPHIN [Concomitant]

REACTIONS (2)
  - Acne [None]
  - Staphylococcal infection [None]

NARRATIVE: CASE EVENT DATE: 20150323
